FAERS Safety Report 4666278-4 (Version None)
Quarter: 2005Q2

REPORT INFORMATION
  Report Type: 
  Country: None (occurrence: None)
  Receive Date: 20050518
  Receipt Date: 20050511
  Transmission Date: 20051028
  Serious: Yes (Disabling)
  Sender: FDA-Public Use
  Company Number: A044-002-005510

PATIENT
  Age: 87 Year
  Sex: Male
  Weight: 65.2 kg

DRUGS (1)
  1. ARICEPT [Suspect]
     Indication: DEMENTIA ALZHEIMER'S TYPE
     Dosage: 10 MG, 1 IN 1 D, ORAL
     Route: 048
     Dates: start: 20040801, end: 20050201

REACTIONS (7)
  - BENIGN PROSTATIC HYPERPLASIA [None]
  - CELLULITIS [None]
  - CONSTIPATION [None]
  - LETHARGY [None]
  - MUSCLE SPASMS [None]
  - OEDEMA PERIPHERAL [None]
  - URINARY INCONTINENCE [None]
